FAERS Safety Report 8221530-0 (Version None)
Quarter: 2012Q1

REPORT INFORMATION
  Report Type: 
  Country: None (occurrence: None)
  Receive Date: 20120320
  Receipt Date: 20120316
  Transmission Date: 20120608
  Serious: No
  Sender: FDA-Public Use
  Company Number: US-TEVA-328818USA

PATIENT
  Sex: Female
  Weight: 97.61 kg

DRUGS (4)
  1. PLAN B ONE-STEP [Suspect]
     Indication: POST COITAL CONTRACEPTION
     Dosage: 1.5 MILLIGRAM;
     Route: 048
     Dates: start: 20120309, end: 20120309
  2. LEXAPRO [Concomitant]
     Indication: PANIC DISORDER
     Dosage: 20 MILLIGRAM;
     Dates: start: 20110701
  3. LEXAPRO [Concomitant]
     Indication: AGORAPHOBIA
  4. MULTI-VITAMIN [Concomitant]
     Indication: SUPPLEMENTATION THERAPY

REACTIONS (1)
  - MENORRHAGIA [None]
